FAERS Safety Report 11083664 (Version 2)
Quarter: 2019Q1

REPORT INFORMATION
  Report Type: Spontaneous
  Country: US (occurrence: US)
  Receive Date: 20150501
  Receipt Date: 20190107
  Transmission Date: 20190417
  Serious: Yes (Hospitalization, Other)
  Sender: FDA-Public Use
  Company Number: US-B.I. PHARMACEUTICALS,INC./RIDGEFIELD-2015-BI-21873BP

PATIENT
  Age: 70 Year
  Sex: Male
  Weight: 77 kg

DRUGS (2)
  1. ATORAVASTATIN [Concomitant]
     Active Substance: ATORVASTATIN
     Indication: BLOOD CHOLESTEROL INCREASED
     Route: 048
  2. PRADAXA [Suspect]
     Active Substance: DABIGATRAN ETEXILATE MESYLATE
     Indication: ATRIAL FIBRILLATION
     Route: 048
     Dates: start: 2013

REACTIONS (6)
  - Atrial thrombosis [Recovered/Resolved]
  - Dizziness [Not Recovered/Not Resolved]
  - Intracardiac thrombus [Not Recovered/Not Resolved]
  - Heart rate decreased [Unknown]
  - Cardiac aneurysm [Recovered/Resolved]
  - Dyspnoea [Not Recovered/Not Resolved]

NARRATIVE: CASE EVENT DATE: 2015
